FAERS Safety Report 4572720-X (Version None)
Quarter: 2005Q1

REPORT INFORMATION
  Report Type: 
  Country: None (occurrence: None)
  Receive Date: 20050208
  Receipt Date: 20041207
  Transmission Date: 20050727
  Serious: No
  Sender: FDA-Public Use
  Company Number: US-GLAXOSMITHKLINE-A0537163A

PATIENT
  Sex: Female

DRUGS (3)
  1. PAXIL CR [Suspect]
     Indication: MIGRAINE
     Dosage: 12.5MG UNKNOWN
     Route: 048
  2. ZOLOFT [Suspect]
     Indication: MIGRAINE
     Dosage: 150MG PER DAY
     Route: 048
  3. RELPAX [Suspect]
     Indication: MIGRAINE
     Route: 065

REACTIONS (7)
  - ASTHENIA [None]
  - CHEST DISCOMFORT [None]
  - FATIGUE [None]
  - FEELING ABNORMAL [None]
  - MIDDLE INSOMNIA [None]
  - SENSATION OF PRESSURE [None]
  - THROAT TIGHTNESS [None]
